FAERS Safety Report 17696758 (Version 1)
Quarter: 2020Q2

REPORT INFORMATION
  Report Type: Report from Study
  Country: DE (occurrence: DE)
  Receive Date: 20200423
  Receipt Date: 20200423
  Transmission Date: 20200714
  Serious: Yes (Hospitalization)
  Sender: FDA-Public Use
  Company Number: DE-ROCHE-2585478

PATIENT
  Age: 57 Year
  Sex: Female
  Weight: 59 kg

DRUGS (20)
  1. MONO EMBOLEX [Concomitant]
     Active Substance: CERTOPARIN SODIUM
     Route: 058
     Dates: start: 20190123, end: 20190125
  2. PREDNISOLONE. [Concomitant]
     Active Substance: PREDNISOLONE
     Route: 042
     Dates: start: 20190130, end: 20190130
  3. AERIUS (DESLORATADINE) [Concomitant]
     Active Substance: DESLORATADINE
     Route: 048
     Dates: start: 20180717, end: 20180719
  4. AERIUS (DESLORATADINE) [Concomitant]
     Active Substance: DESLORATADINE
     Route: 048
     Dates: start: 20180731, end: 20180802
  5. BACLOFEN. [Concomitant]
     Active Substance: BACLOFEN
     Route: 048
     Dates: start: 20091111
  6. INSUMAN RAPID [Concomitant]
     Active Substance: INSULIN HUMAN
     Dosage: DEFINITION OF THE INTERVAL: AS REQUIRED
     Route: 058
     Dates: start: 20190123, end: 20190125
  7. PREDNISOLONE. [Concomitant]
     Active Substance: PREDNISOLONE
     Route: 065
     Dates: start: 20190831, end: 20190905
  8. RANITIDINE. [Concomitant]
     Active Substance: RANITIDINE
     Route: 048
     Dates: start: 20180731, end: 20180802
  9. FAMPYRA [Concomitant]
     Active Substance: DALFAMPRIDINE
     Route: 048
     Dates: start: 20120110
  10. AERIUS (DESLORATADINE) [Concomitant]
     Active Substance: DESLORATADINE
     Route: 048
     Dates: start: 20190129, end: 20190131
  11. PREDNISOLONE. [Concomitant]
     Active Substance: PREDNISOLONE
     Route: 042
     Dates: start: 20180801, end: 20180801
  12. MOVICOL [Concomitant]
     Active Substance: POLYETHYLENE GLYCOL 3350\POTASSIUM CHLORIDE\SODIUM BICARBONATE\SODIUM CHLORIDE
     Indication: CONSTIPATION
     Dosage: DEFINITION OF THE INTERVAL: AS REQUIRED
     Route: 048
  13. OCRELIZUMAB. [Suspect]
     Active Substance: OCRELIZUMAB
     Indication: MULTIPLE SCLEROSIS
     Route: 042
     Dates: start: 20190130, end: 20190807
  14. RANITIDINE. [Concomitant]
     Active Substance: RANITIDINE
     Route: 048
     Dates: start: 20190129, end: 20190131
  15. DEKRISTOL [Concomitant]
     Active Substance: CHOLECALCIFEROL
     Indication: VITAMIN D DEFICIENCY
     Route: 048
     Dates: start: 20131022
  16. ASPIRIN. [Concomitant]
     Active Substance: ASPIRIN
     Route: 048
     Dates: start: 20190123, end: 20190124
  17. OCRELIZUMAB. [Suspect]
     Active Substance: OCRELIZUMAB
     Route: 042
     Dates: start: 20180718, end: 20180801
  18. RANITIDINE. [Concomitant]
     Active Substance: RANITIDINE
     Route: 048
     Dates: start: 20180717, end: 20180719
  19. PREDNISOLONE. [Concomitant]
     Active Substance: PREDNISOLONE
     Route: 042
     Dates: start: 20180718, end: 20180718
  20. PARACETAMOL [Concomitant]
     Active Substance: ACETAMINOPHEN
     Dosage: DEFINITION OF THE INTERVAL: AS REQUIRED
     Route: 048
     Dates: start: 20190123, end: 20190125

REACTIONS (1)
  - Decubitus ulcer [Unknown]

NARRATIVE: CASE EVENT DATE: 201908
